FAERS Safety Report 8221531-2 (Version None)
Quarter: 2012Q1

REPORT INFORMATION
  Report Type: 
  Country: None (occurrence: None)
  Receive Date: 20120320
  Receipt Date: 20120313
  Transmission Date: 20120608
  Serious: Yes (Disabling)
  Sender: FDA-Public Use
  Company Number: GB-ALLERGAN-1203667US

PATIENT
  Age: 73 Year
  Sex: Female
  Weight: 68 kg

DRUGS (9)
  1. TIMOLOL MALEATE [Concomitant]
     Dosage: UNK
     Dates: start: 20111206
  2. ZOVIRAX [Concomitant]
     Dosage: UNK
     Dates: start: 20111206
  3. AZOPT [Concomitant]
     Dosage: UNK
     Dates: start: 20111206
  4. COMBIGAN [Suspect]
     Indication: PRODUCT USED FOR UNKNOWN INDICATION
     Dosage: UNK
     Route: 065
     Dates: start: 20120228, end: 20120301
  5. BENDROFLUMETHIAZIDE [Concomitant]
     Dosage: UNK
     Dates: start: 20111206
  6. BISOPROLOL FUMARATE [Concomitant]
     Dosage: UNK
     Dates: start: 20111206
  7. HYPROMELLOSE [Concomitant]
     Dosage: UNK
     Dates: start: 20111206
  8. AMITRIPTYLINE HCL [Concomitant]
     Dosage: UNK
     Dates: start: 20111206
  9. MAXIDEX [Concomitant]
     Dosage: UNK
     Dates: start: 20111206

REACTIONS (4)
  - DIARRHOEA [None]
  - SWELLING FACE [None]
  - HEADACHE [None]
  - THROAT TIGHTNESS [None]
